FAERS Safety Report 18786121 (Version 7)
Quarter: 2021Q3

REPORT INFORMATION
  Report Type: Other
  Country: CA (occurrence: CA)
  Receive Date: 20210126
  Receipt Date: 20210914
  Transmission Date: 20211014
  Serious: No
  Sender: FDA-Public Use
  Company Number: CA-ROCHE-2681217

PATIENT
  Age: 38 Year
  Sex: Female
  Weight: 71.3 kg

DRUGS (4)
  1. AERIUS [Concomitant]
     Route: 048
  2. OCREVUS [Suspect]
     Active Substance: OCRELIZUMAB
     Indication: RELAPSING-REMITTING MULTIPLE SCLEROSIS
     Dosage: 300 MG AT DAY 0 AND 14, THEN 600 MG EVERY 6 MONTH
     Route: 042
     Dates: start: 20200915
  3. TYLENOL [Concomitant]
     Active Substance: ACETAMINOPHEN
  4. SOLU?MEDROL [Concomitant]
     Active Substance: METHYLPREDNISOLONE SODIUM SUCCINATE

REACTIONS (4)
  - Acne [Not Recovered/Not Resolved]
  - Aphthous ulcer [Recovered/Resolved]
  - Infusion related reaction [Unknown]
  - Oral herpes [Recovered/Resolved]

NARRATIVE: CASE EVENT DATE: 20200915
